FAERS Safety Report 6385487-X (Version None)
Quarter: 2009Q4

REPORT INFORMATION
  Report Type: 
  Country: None (occurrence: None)
  Receive Date: 20091002
  Receipt Date: 20080923
  Transmission Date: 20100525
  Serious: No
  Sender: FDA-Public Use
  Company Number: US-ASTRAZENECA-2008UW19897

PATIENT
  Age: 51 Year
  Sex: Female

DRUGS (4)
  1. ARIMIDEX [Suspect]
     Indication: BREAST CANCER
     Route: 048
     Dates: start: 20040101
  2. LEVAMIR [Concomitant]
  3. PREVACID [Concomitant]
  4. MULTI-VITAMINS [Concomitant]

REACTIONS (3)
  - BONE PAIN [None]
  - BURSITIS [None]
  - TRIGGER FINGER [None]
